FAERS Safety Report 7388909-0 (Version None)
Quarter: 2011Q2

REPORT INFORMATION
  Report Type: 
  Country: None (occurrence: None)
  Receive Date: 20110401
  Receipt Date: 20110325
  Transmission Date: 20111010
  Serious: Yes (Hospitalization)
  Sender: FDA-Public Use
  Company Number: US-ALEXION-A201100146

PATIENT
  Sex: Female
  Weight: 117.7 kg

DRUGS (11)
  1. HEP-B-VAX [Concomitant]
     Route: 030
  2. BENZTROPINE MESYLATE [Concomitant]
     Dosage: 1-2 MG, QHS
  3. FOLIC ACID [Concomitant]
     Indication: MEDICAL DIET
     Dosage: 1 MG, QD
  4. SOLIRIS [Suspect]
     Indication: PAROXYSMAL NOCTURNAL HAEMOGLOBINURIA
     Dosage: UNK
     Route: 042
  5. HYDROXYZINE [Concomitant]
     Indication: PRURITUS
     Dosage: 25 MG, Q6HR AS NEEDED
     Route: 048
  6. TEMAZEPAM [Concomitant]
     Indication: INSOMNIA
     Dosage: 1 TABLET, QD AS NEEDED
  7. NEXIUM [Concomitant]
     Dosage: 40 MG, QD
  8. NIFEREX [Concomitant]
     Dosage: 150 MG, BID
     Route: 048
  9. FERROUS GLUCONATE [Concomitant]
     Dosage: 325 MG, TID
     Route: 048
  10. CELEXA [Concomitant]
     Indication: DEPRESSION
     Dosage: 20 MG, QD
  11. CHLORPROMAZINE HYDROCHLORIDE [Concomitant]
     Dosage: UNK, PRN QHS

REACTIONS (19)
  - PAROXYSMAL NOCTURNAL HAEMOGLOBINURIA [None]
  - DEHYDRATION [None]
  - PRESYNCOPE [None]
  - HYPERHIDROSIS [None]
  - URINARY TRACT INFECTION [None]
  - HYPOKALAEMIA [None]
  - ASPARTATE AMINOTRANSFERASE INCREASED [None]
  - NAUSEA [None]
  - COUGH [None]
  - RHINORRHOEA [None]
  - ANAEMIA MACROCYTIC [None]
  - CONDITION AGGRAVATED [None]
  - GASTROOESOPHAGEAL REFLUX DISEASE [None]
  - VOMITING [None]
  - PYREXIA [None]
  - CONSTIPATION [None]
  - NASOPHARYNGITIS [None]
  - CHEST PAIN [None]
  - OROPHARYNGEAL PAIN [None]
